FAERS Safety Report 10920520 (Version 1)
Quarter: 2015Q1

REPORT INFORMATION
  Report Type: Spontaneous
  Country: US (occurrence: None)
  Receive Date: 20150312
  Receipt Date: 20150312
  Transmission Date: 20150721
  Serious: Yes (Hospitalization)
  Sender: FDA-Public Use
  Company Number: None

PATIENT
  Age: 59 Year
  Sex: Male
  Weight: 125.7 kg

DRUGS (2)
  1. GEMFIBROZIL. [Suspect]
     Active Substance: GEMFIBROZIL
     Indication: PANCREATITIS
     Route: 048
     Dates: start: 20140605, end: 20140611
  2. AMOXICILLIN CLAVULANATE [Suspect]
     Active Substance: AMOXICILLIN\CLAVULANIC ACID
     Indication: PANCREATITIS
     Dosage: 1 TAB PO BID
     Route: 048
     Dates: start: 20140605, end: 20140611

REACTIONS (2)
  - Palpable purpura [None]
  - Rash [None]

NARRATIVE: CASE EVENT DATE: 20140612
